FAERS Safety Report 7383398-4 (Version None)
Quarter: 2011Q1

REPORT INFORMATION
  Report Type: 
  Country: None (occurrence: None)
  Receive Date: 20110330
  Receipt Date: 20101006
  Transmission Date: 20110831
  Serious: Yes (Other)
  Sender: FDA-Public Use
  Company Number: US-BAYER-200944022NA

PATIENT
  Sex: Female
  Weight: 64.399 kg

DRUGS (13)
  1. KRISTALOSE [Concomitant]
  2. LEVONORGESTREL + ETHINYL ESTRADIOL [Concomitant]
     Dosage: UNK
     Dates: end: 20080923
  3. MOVIPREP [Concomitant]
     Indication: COLONOSCOPY
     Dosage: UNK
     Route: 048
     Dates: start: 20090201
  4. NUVARING [Concomitant]
  5. METOCLOPRAM GI [Concomitant]
     Dosage: UNK
     Route: 048
     Dates: start: 20090319
  6. DARVOCET-N 50 [Concomitant]
     Dosage: 100MG/650 MG
     Route: 048
     Dates: start: 20090401
  7. PRILOSEC [Concomitant]
  8. ALBUTEROL [Concomitant]
     Indication: ASTHMA
     Dosage: UNK UNK, PRN
     Dates: start: 19970101
  9. ADVIL [IBUPROFEN] [Concomitant]
     Indication: ABDOMINAL PAIN
     Dosage: UNK
     Dates: start: 20080901
  10. LEVONORGESTREL + ETHINYL ESTRADIOL [Concomitant]
  11. YAZ [Suspect]
     Dates: start: 20081201, end: 20090915
  12. ADVIL [IBUPROFEN] [Concomitant]
     Dosage: UNK
     Dates: start: 20090301
  13. ADVIL [IBUPROFEN] [Concomitant]
     Dosage: UNK
     Dates: start: 20090401

REACTIONS (16)
  - ABDOMINAL PAIN [None]
  - ABDOMINAL PAIN LOWER [None]
  - GALLBLADDER DISORDER [None]
  - DYSPEPSIA [None]
  - BILIARY DYSKINESIA [None]
  - CONSTIPATION [None]
  - IMPAIRED GASTRIC EMPTYING [None]
  - ABDOMINAL PAIN UPPER [None]
  - PYREXIA [None]
  - GASTRITIS [None]
  - CHEST PAIN [None]
  - NAUSEA [None]
  - GASTROOESOPHAGEAL REFLUX DISEASE [None]
  - PROCEDURAL PAIN [None]
  - CHOLECYSTITIS CHRONIC [None]
  - VOMITING [None]
